FAERS Safety Report 4996311-1 (Version None)
Quarter: 2006Q2

REPORT INFORMATION
  Report Type: 
  Country: None (occurrence: None)
  Receive Date: 20060505
  Receipt Date: 20060426
  Transmission Date: 20061013
  Serious: Yes (Hospitalization, Other)
  Sender: FDA-Public Use
  Company Number: HQWYE006026APR06

PATIENT
  Age: 90 Year
  Sex: Female

DRUGS (8)
  1. CORDARONE [Suspect]
     Indication: ARRHYTHMIA
     Dosage: 200  MG 1X PER 1 DAY ORAL
     Route: 048
     Dates: start: 20041030, end: 20050524
  2. NORVASC [Suspect]
     Dosage: 2.5 MG 1X PER 1 DAY ORAL; 5 MG 1X PER 1 DAY ORAL
     Route: 048
     Dates: start: 20020618, end: 20021104
  3. NORVASC [Suspect]
     Dosage: 2.5 MG 1X PER 1 DAY ORAL; 5 MG 1X PER 1 DAY ORAL
     Route: 048
     Dates: start: 20021105, end: 20041002
  4. SPIROFUR (FUROSEMIDE/SPIRONOLACTONE) [Suspect]
     Dosage: 70 MG 1X PER 2 DAY ORAL; 35 MG 1X PER 1 DAY ORAL
     Route: 048
     Dates: start: 20040418, end: 20041030
  5. SPIROFUR (FUROSEMIDE/SPIRONOLACTONE) [Suspect]
     Dosage: 70 MG 1X PER 2 DAY ORAL; 35 MG 1X PER 1 DAY ORAL
     Route: 048
     Dates: start: 20041030, end: 20050514
  6. RAMIPRIL [Suspect]
     Indication: CARDIAC DISORDER
     Dosage: 2.5 MG 1X PER 1 DAY ORAL
     Route: 048
     Dates: start: 20041030, end: 20050514
  7. ASCRIPTIN (ACETYLSALICYLIC ACID/ALUMINIUM HYDROXIDE/MAGNESIUM HYDROXID [Concomitant]
  8. GABAPENTIN [Concomitant]

REACTIONS (8)
  - AORTIC VALVE INCOMPETENCE [None]
  - AORTIC VALVE SCLEROSIS [None]
  - ASTHENIA [None]
  - BLOOD CREATINE INCREASED [None]
  - BLOOD POTASSIUM INCREASED [None]
  - DYSSTASIA [None]
  - HYPOTHYROIDISM [None]
  - TREMOR [None]
